FAERS Safety Report 14959760 (Version 1)
Quarter: 2018Q2

REPORT INFORMATION
  Report Type: Spontaneous
  Country: JP (occurrence: JP)
  Receive Date: 20180531
  Receipt Date: 20180531
  Transmission Date: 20180711
  Serious: Yes (Death)
  Sender: FDA-Public Use
  Company Number: JP-PFIZER INC-2018217131

PATIENT
  Age: 38 Year
  Sex: Male

DRUGS (1)
  1. MYLOTARG [Suspect]
     Active Substance: GEMTUZUMAB OZOGAMICIN
     Indication: ACUTE MYELOID LEUKAEMIA
     Dosage: 15 MG, UNK

REACTIONS (3)
  - Abdominal distension [Unknown]
  - Respiratory failure [Fatal]
  - Neoplasm progression [Unknown]

NARRATIVE: CASE EVENT DATE: 2006
